FAERS Safety Report 7465716-1 (Version None)
Quarter: 2011Q2

REPORT INFORMATION
  Report Type: 
  Country: None (occurrence: None)
  Receive Date: 20110509
  Receipt Date: 20110428
  Transmission Date: 20111010
  Serious: Yes (Hospitalization)
  Sender: FDA-Public Use
  Company Number: B0717575A

PATIENT
  Sex: Female

DRUGS (22)
  1. IRBESARTAN + HYDROCHLOROTHIAZIDE [Concomitant]
     Indication: HYPERTENSION
     Dates: start: 20010101
  2. PANADOL OSTEO [Concomitant]
     Indication: PAIN
     Dosage: 665MG TWICE PER DAY
     Dates: start: 20110202
  3. VITAMIN B [Concomitant]
     Dates: start: 20080101
  4. PHENERGAN HCL [Concomitant]
     Indication: NAUSEA
     Dosage: 20ML PER DAY
     Dates: start: 20110419
  5. LAPATINIB [Suspect]
     Dosage: 1250MG PER DAY
     Route: 048
     Dates: start: 20110216
  6. COLOXYL + SENNA [Concomitant]
     Indication: CONSTIPATION
     Dosage: 50MG AS REQUIRED
     Dates: start: 20110202
  7. GABAPENTIN [Concomitant]
     Indication: HOT FLUSH
     Dosage: 300MG FIVE TIMES PER DAY
     Dates: start: 20110322
  8. CALTRATE [Concomitant]
     Dates: start: 20080101
  9. EFFEXOR [Concomitant]
     Dosage: 75MG PER DAY
  10. MAXOLON [Concomitant]
     Indication: NAUSEA
     Dosage: 10MG PER DAY
     Dates: start: 20110209
  11. OMEPRAZOLE [Concomitant]
     Indication: ILL-DEFINED DISORDER
     Dates: start: 20110216
  12. NEXIUM [Concomitant]
     Indication: NAUSEA
     Dates: start: 20110420
  13. PACLITAXEL [Suspect]
     Dosage: 135MG WEEKLY
     Route: 042
     Dates: start: 20110216
  14. DEXAMETHASONE [Concomitant]
     Indication: NAUSEA
     Dosage: 8MG PER DAY
     Dates: start: 20110209
  15. MOVIPREP [Concomitant]
     Indication: CONSTIPATION
     Dosage: 3SAC PER DAY
     Dates: start: 20110212
  16. KYTRIL [Concomitant]
     Indication: NAUSEA
     Dosage: 2MG PER DAY
     Dates: start: 20110216
  17. VENTOLIN [Concomitant]
     Indication: ASTHMA
     Dates: start: 19760101
  18. HALOPERIDOL [Concomitant]
     Indication: NAUSEA
     Dates: start: 20110126
  19. STEMETIL [Concomitant]
     Indication: NAUSEA
     Dosage: 5MG PER DAY
     Dates: start: 20110216
  20. PRAMIN [Concomitant]
     Indication: NAUSEA
     Dosage: 10MG FOUR TIMES PER DAY
     Dates: start: 20110202
  21. METHADONE HCL [Concomitant]
     Indication: PAIN
     Dosage: 10MG NINE TIMES PER DAY
     Dates: start: 20110315
  22. LORAZEPAM [Concomitant]
     Indication: NAUSEA
     Dosage: .5MG PER DAY
     Dates: start: 20110318

REACTIONS (1)
  - GASTROINTESTINAL OBSTRUCTION [None]
